FAERS Safety Report 7150256-X (Version None)
Quarter: 2010Q4

REPORT INFORMATION
  Report Type: 
  Country: None (occurrence: None)
  Receive Date: 20101207
  Receipt Date: 20101207
  Transmission Date: 20110411
  Serious: Yes (Hospitalization)
  Sender: FDA-Public Use
  Company Number: None

PATIENT
  Age: 17 Year
  Sex: Female
  Weight: 37.7 kg

DRUGS (24)
  1. TACROLIMUS [Suspect]
     Indication: LUNG TRANSPLANT
     Dosage: 1.5MG TWICE DAILY ORALLY
     Route: 048
     Dates: start: 20060301
  2. ULTRASE MT20 [Concomitant]
  3. PROGRAF [Concomitant]
  4. PREDNISONE [Concomitant]
  5. NYSTATIN [Concomitant]
  6. LIPITOR [Concomitant]
  7. URSODIOL [Concomitant]
  8. BACTRIM [Concomitant]
  9. LEXAPRO [Concomitant]
  10. PREVACID [Concomitant]
  11. FLONASE [Concomitant]
  12. LANTUS [Concomitant]
  13. MEDROXYPROGESTERONE [Concomitant]
  14. AZITHROMYCIN [Concomitant]
  15. VALGANCICLOVIR HCL [Concomitant]
  16. ONDANSETRON [Concomitant]
  17. AQUADEKS [Concomitant]
  18. FLUCONAZOLE [Concomitant]
  19. OSCAL+D [Concomitant]
  20. NOVOLOG [Concomitant]
  21. CELLCEPT [Concomitant]
  22. ASCORBIC ACID [Concomitant]
  23. MAGNESIUM OXIDE [Concomitant]
  24. FERROUS SULFATE [Concomitant]

REACTIONS (7)
  - BLOOD GLUCOSE INCREASED [None]
  - HYPERPHAGIA [None]
  - LUNG TRANSPLANT REJECTION [None]
  - NAUSEA [None]
  - RENAL FAILURE ACUTE [None]
  - TREATMENT NONCOMPLIANCE [None]
  - VOMITING [None]
